FAERS Safety Report 11920020 (Version 2)
Quarter: 2016Q1

REPORT INFORMATION
  Report Type: Spontaneous
  Country: US (occurrence: US)
  Receive Date: 20160115
  Receipt Date: 20160128
  Transmission Date: 20160526
  Serious: Yes (Hospitalization)
  Sender: FDA-Public Use
  Company Number: US-UNITED THERAPEUTICS-UNT-2015-012636

PATIENT
  Age: 33 Year
  Sex: Female
  Weight: 74.83 kg

DRUGS (10)
  1. TRACLEER [Concomitant]
     Active Substance: BOSENTAN
     Indication: PRODUCT USED FOR UNKNOWN INDICATION
  2. OPSUMIT [Concomitant]
     Active Substance: MACITENTAN
     Indication: PRODUCT USED FOR UNKNOWN INDICATION
     Dosage: 10 MG, QD
  3. ZOFRAN [Concomitant]
     Active Substance: ONDANSETRON HYDROCHLORIDE
     Indication: PRODUCT USED FOR UNKNOWN INDICATION
     Dosage: 4 MG, TID, PRN
  4. REMODULIN [Suspect]
     Active Substance: TREPROSTINIL
     Dosage: 0.070 ?G/KG, CONTINUING
     Route: 041
     Dates: start: 20151116
  5. ALDACTONE [Concomitant]
     Active Substance: SPIRONOLACTONE
     Indication: PRODUCT USED FOR UNKNOWN INDICATION
     Dosage: 25 MG, QD
  6. REMODULIN [Suspect]
     Active Substance: TREPROSTINIL
     Indication: PULMONARY ARTERIAL HYPERTENSION
     Dosage: 0.050 ?G/KG, CONTINUING
     Route: 058
     Dates: start: 20141208, end: 201510
  7. REMODULIN [Suspect]
     Active Substance: TREPROSTINIL
     Dosage: UNK
  8. ADEMPAS [Concomitant]
     Active Substance: RIOCIGUAT
     Indication: PRODUCT USED FOR UNKNOWN INDICATION
     Dosage: 2.5 MG, TID
  9. PROTONIX                           /00661201/ [Concomitant]
     Active Substance: OMEPRAZOLE
     Indication: PRODUCT USED FOR UNKNOWN INDICATION
     Dosage: 40 MG, QD
  10. BENADRYL [Concomitant]
     Active Substance: DIPHENHYDRAMINE HYDROCHLORIDE
     Indication: PRODUCT USED FOR UNKNOWN INDICATION
     Dosage: 25 MG, Q6H PRN

REACTIONS (12)
  - Device issue [Unknown]
  - Drug dose omission [Unknown]
  - Injection site reaction [Unknown]
  - Hyperthyroidism [Recovered/Resolved]
  - Vomiting [Unknown]
  - Palpitations [Not Recovered/Not Resolved]
  - Pulmonary arterial hypertension [Unknown]
  - Nausea [Unknown]
  - Syncope [Not Recovered/Not Resolved]
  - Dyspnoea [Recovering/Resolving]
  - Pruritus [Unknown]
  - Headache [Unknown]

NARRATIVE: CASE EVENT DATE: 201510
